FAERS Safety Report 7595342-5 (Version None)
Quarter: 2011Q3

REPORT INFORMATION
  Report Type: 
  Country: None (occurrence: None)
  Receive Date: 20110707
  Receipt Date: 20110701
  Transmission Date: 20111222
  Serious: Yes (Hospitalization)
  Sender: FDA-Public Use
  Company Number: FR-B.I. PHARMACEUTICALS,INC./RIDGEFIELD-2011-FF-00542FF

PATIENT
  Sex: Female
  Weight: 64 kg

DRUGS (3)
  1. PRADAXA [Suspect]
     Indication: THROMBOSIS PROPHYLAXIS
  2. KETOPROFEN [Concomitant]
     Dosage: 200 MG
  3. PRADAXA [Suspect]
     Indication: HIP ARTHROPLASTY
     Dosage: 150 MG
     Route: 048
     Dates: start: 20110128

REACTIONS (2)
  - HIP FRACTURE [None]
  - JOINT DISLOCATION [None]
